FAERS Safety Report 7380695-3 (Version None)
Quarter: 2011Q1

REPORT INFORMATION
  Report Type: 
  Country: None (occurrence: None)
  Receive Date: 20110329
  Receipt Date: 20110324
  Transmission Date: 20110831
  Serious: No
  Sender: FDA-Public Use
  Company Number: US-PFIZER INC-2010109589

PATIENT
  Sex: Female
  Weight: 113 kg

DRUGS (9)
  1. ZYVOX [Suspect]
     Indication: SINUSITIS
     Dosage: 500 MG, 2X/DAY
     Route: 048
  2. LASIX [Concomitant]
     Dosage: 40 MG, DAILY
  3. SYNTHROID [Concomitant]
     Dosage: 100 UG, DAILY
  4. EFFEXOR XR [Suspect]
     Indication: DEPRESSION
     Dosage: 175 MG, 1X/DAY
  5. EFFEXOR XR [Suspect]
     Indication: PAIN
  6. ACYCLOVIR [Concomitant]
  7. ZYVOX [Suspect]
     Indication: STAPHYLOCOCCAL INFECTION
     Dosage: 600 MG, 2X/DAY
     Route: 048
     Dates: start: 20100713
  8. SPIRONOLACTONE [Concomitant]
     Dosage: UNK, DAILY
  9. ACYCLOVIR [Concomitant]
     Indication: HERPES SIMPLEX
     Dosage: UNK

REACTIONS (2)
  - HERPES VIRUS INFECTION [None]
  - DIARRHOEA [None]
